FAERS Safety Report 16365904 (Version 2)
Quarter: 2019Q4

REPORT INFORMATION
  Report Type: Spontaneous
  Country: IT (occurrence: IT)
  Receive Date: 20190529
  Receipt Date: 20191011
  Transmission Date: 20200122
  Serious: Yes (Hospitalization)
  Sender: FDA-Public Use
  Company Number: IT-ASTRAZENECA-2019SE76873

PATIENT
  Age: 56 Year
  Sex: Male

DRUGS (3)
  1. VOLTFAST [Suspect]
     Active Substance: DICLOFENAC
     Indication: PAIN
     Dosage: 150.0MG ONCE/SINGLE ADMINISTRATION
     Route: 048
     Dates: start: 20190303, end: 20190303
  2. ESOPRAL [Suspect]
     Active Substance: ESOMEPRAZOLE
     Indication: DUODENAL ULCER
     Dosage: 480.0MG ONCE/SINGLE ADMINISTRATION
     Route: 048
     Dates: start: 20190303, end: 20190303
  3. ANAURAN [BENZALKONIUM\BETAMETHASONE\FURALTADONE\NEOMYCIN\POLYMYXIN B] [Suspect]
     Active Substance: BENZALKONIUM\BETAMETHASONE\FURALTADONE\NEOMYCIN\POLYMYXIN B
     Indication: EAR INFECTION
     Dosage: 100.0ML ONCE/SINGLE ADMINISTRATION
     Route: 048
     Dates: start: 20190303, end: 20190303

REACTIONS (5)
  - Carboxyhaemoglobinaemia [Recovered/Resolved]
  - Drug abuse [Recovered/Resolved]
  - Suicide attempt [Recovered/Resolved]
  - Sopor [Recovered/Resolved]
  - Metabolic acidosis [Recovered/Resolved]

NARRATIVE: CASE EVENT DATE: 20190303
